FAERS Safety Report 8286251-7 (Version None)
Quarter: 2012Q2

REPORT INFORMATION
  Report Type: 
  Country: None (occurrence: None)
  Receive Date: 20120416
  Receipt Date: 20120404
  Transmission Date: 20120825
  Serious: No
  Sender: FDA-Public Use
  Company Number: US-PFIZER INC-2012089324

PATIENT
  Sex: Female
  Weight: 220 kg

DRUGS (3)
  1. METHOTREXATE SODIUM [Suspect]
  2. CIPROFLOXACIN [Suspect]
     Dosage: UNK
  3. LEFLUNOMIDE [Suspect]

REACTIONS (1)
  - DRUG HYPERSENSITIVITY [None]
